FAERS Safety Report 7917909-4 (Version None)
Quarter: 2011Q4

REPORT INFORMATION
  Report Type: 
  Country: None (occurrence: None)
  Receive Date: 20111116
  Receipt Date: 20111111
  Transmission Date: 20120403
  Serious: Yes (Other)
  Sender: FDA-Public Use
  Company Number: PHHY2011AU65444

PATIENT
  Sex: Male

DRUGS (1)
  1. TEGRETOL [Suspect]
     Indication: LOSS OF CONSCIOUSNESS
     Dosage: 400 MG, DAILY
     Route: 048
     Dates: start: 20060101

REACTIONS (2)
  - PROSTATOMEGALY [None]
  - PROSTATIC SPECIFIC ANTIGEN INCREASED [None]
